FAERS Safety Report 23795170 (Version 1)
Quarter: 2024Q2

REPORT INFORMATION
  Report Type: Spontaneous
  Country: US (occurrence: None)
  Receive Date: 20240426
  Receipt Date: 20240426
  Transmission Date: 20240716
  Serious: Yes (Hospitalization, Other)
  Sender: FDA-Public Use
  Company Number: None

PATIENT
  Age: 40 Year
  Sex: Female
  Weight: 67 kg

DRUGS (13)
  1. DAPSONE [Suspect]
     Active Substance: DAPSONE
     Indication: Opportunistic infection prophylaxis
     Dosage: FREQUENCY : DAILY;?
     Route: 048
     Dates: start: 20230417, end: 20240304
  2. REMDESIVIR [Concomitant]
     Active Substance: REMDESIVIR
     Dates: start: 20240221, end: 20240225
  3. CEFTRIAXONE [Concomitant]
     Active Substance: CEFTRIAXONE\CEFTRIAXONE SODIUM
     Dates: start: 20240221, end: 20240225
  4. AZITHROMYCIN [Concomitant]
     Active Substance: AZITHROMYCIN
     Dates: start: 20240221, end: 20240225
  5. DEXAMETHASONE [Concomitant]
     Active Substance: DEXAMETHASONE
     Dates: start: 20240221, end: 20240225
  6. PREDNISONE [Concomitant]
     Active Substance: PREDNISONE
     Dates: start: 20230608
  7. CEFEPIME [Concomitant]
     Active Substance: CEFEPIME HYDROCHLORIDE
     Dates: start: 20240303
  8. ACYCLOVIR [Concomitant]
     Active Substance: ACYCLOVIR
     Dates: start: 20220901
  9. POSACONAZOLE [Concomitant]
     Active Substance: POSACONAZOLE
     Dates: start: 20221025
  10. GILTERITINIB [Concomitant]
     Active Substance: GILTERITINIB
     Dates: start: 20230531
  11. TACROLIMUS [Concomitant]
     Active Substance: TACROLIMUS
     Dates: start: 20230226
  12. BELUMOSUDIL [Concomitant]
     Active Substance: BELUMOSUDIL
     Dates: start: 20231101
  13. DAPSONE [Concomitant]
     Active Substance: DAPSONE
     Dates: start: 20230417, end: 20240304

REACTIONS (2)
  - COVID-19 pneumonia [None]
  - Methaemoglobinaemia [None]

NARRATIVE: CASE EVENT DATE: 20240304
